FAERS Safety Report 7801746-5 (Version None)
Quarter: 2011Q4

REPORT INFORMATION
  Report Type: 
  Country: None (occurrence: None)
  Receive Date: 20111004
  Receipt Date: 20101207
  Transmission Date: 20120403
  Serious: Yes (Hospitalization)
  Sender: FDA-Public Use
  Company Number: 2010GW000947

PATIENT
  Age: 81 Year
  Sex: Male

DRUGS (5)
  1. LIPITOR [Suspect]
     Indication: PRODUCT USED FOR UNKNOWN INDICATION
  2. PLAVIX [Suspect]
     Indication: PRODUCT USED FOR UNKNOWN INDICATION
  3. EYE DROPS (TETRYZOLINE HYDROCHLORIDE) [Suspect]
     Indication: GLAUCOMA
  4. MAXAIR [Suspect]
     Indication: ASTHMA
     Dosage: 0.2 M;BID;INH
     Route: 055
  5. ATENOLOL [Suspect]
     Indication: PRODUCT USED FOR UNKNOWN INDICATION

REACTIONS (1)
  - PNEUMONIA [None]
